FAERS Safety Report 25808215 (Version 1)
Quarter: 2025Q3

REPORT INFORMATION
  Report Type: Spontaneous
  Country: US (occurrence: US)
  Receive Date: 20250916
  Receipt Date: 20250916
  Transmission Date: 20251021
  Serious: Yes (Other)
  Sender: NOVO NORDISK
  Company Number: US-NOVOPROD-1519489

PATIENT
  Age: 52 Year
  Sex: Female

DRUGS (2)
  1. WEGOVY [Suspect]
     Active Substance: SEMAGLUTIDE
     Indication: Glucose tolerance impaired
     Dates: start: 20250523, end: 202507
  2. ZEPBOUND [Suspect]
     Active Substance: TIRZEPATIDE
     Indication: Glucose tolerance impaired
     Dates: start: 202502, end: 202505

REACTIONS (5)
  - Throat tightness [Not Recovered/Not Resolved]
  - Rash [Not Recovered/Not Resolved]
  - Hot flush [Recovered/Resolved]
  - Glycosylated haemoglobin increased [Unknown]
  - Product use in unapproved indication [Recovered/Resolved]

NARRATIVE: CASE EVENT DATE: 20250101
